FAERS Safety Report 7818207-X (Version None)
Quarter: 2011Q4

REPORT INFORMATION
  Report Type: 
  Country: None (occurrence: None)
  Receive Date: 20111017
  Receipt Date: 20110825
  Transmission Date: 20120403
  Serious: Yes (Other)
  Sender: FDA-Public Use
  Company Number: PHHO2011BR14484

PATIENT
  Sex: Female

DRUGS (6)
  1. MYCOPHENOLATE MOFETIL [Suspect]
     Dosage: 1500 MG, UNK
     Route: 048
     Dates: start: 20110621
  2. PREDNISONE [Suspect]
     Indication: RENAL TRANSPLANT
     Dosage: 5 MG, UNK
     Dates: start: 20090402
  3. CYCLOSPORINE [Suspect]
     Dosage: 175 MG, UNK
     Dates: start: 20110330, end: 20110406
  4. CYCLOSPORINE [Suspect]
     Indication: RENAL TRANSPLANT
     Dosage: 200 MG, UNK
     Route: 048
     Dates: start: 20090103
  5. CYCLOSPORINE [Suspect]
     Dosage: 150 MG, UNK
     Dates: start: 20110307
  6. MYCOPHENOLATE MOFETIL [Suspect]
     Indication: RENAL TRANSPLANT
     Dosage: 2000 MG, UNK
     Route: 048
     Dates: start: 20070107

REACTIONS (2)
  - BASAL CELL CARCINOMA [None]
  - UPPER LIMB FRACTURE [None]
